FAERS Safety Report 10717287 (Version 4)
Quarter: 2015Q3

REPORT INFORMATION
  Report Type: Report from Study
  Country: BE (occurrence: BE)
  Receive Date: 20150116
  Receipt Date: 20150824
  Transmission Date: 20151125
  Serious: Yes (Hospitalization)
  Sender: FDA-Public Use
  Company Number: BE-ABBVIE-15P-013-1333085-00

PATIENT
  Sex: Female

DRUGS (5)
  1. LEVODOPA/CARBIDOPA [Suspect]
     Active Substance: CARBIDOPA\LEVODOPA
     Dosage: DOSAGE CONTINUOUSLY MONITORED AND ADJUSTED
     Route: 050
     Dates: start: 20100127, end: 20131002
  2. LEVODOPA/CARBIDOPA [Suspect]
     Active Substance: CARBIDOPA\LEVODOPA
     Dosage: AM DOSE= 6.2ML, CONTIN DOSE= 2.6ML/H DURING 16HRS, EXTRA DOSE=1.4ML
     Route: 050
     Dates: start: 20131002, end: 20150603
  3. LEVODOPA/CARBIDOPA [Suspect]
     Active Substance: CARBIDOPA\LEVODOPA
     Dosage: AM DOSE= 5ML, CONTIN DOSE= 1.9ML/H DURING 16HRS, EXTRA DOSE=0.8ML
     Route: 050
     Dates: start: 20100119, end: 20100127
  4. LEVODOPA/CARBIDOPA [Suspect]
     Active Substance: CARBIDOPA\LEVODOPA
     Dosage: AM = 5 ML, CD = 2.4 ML/H DURING 16H, ED = 1.4 ML
     Route: 050
     Dates: start: 20150603
  5. LEVODOPA/CARBIDOPA [Suspect]
     Active Substance: CARBIDOPA\LEVODOPA
     Indication: PARKINSON^S DISEASE
     Route: 050
     Dates: start: 20100118, end: 20100119

REACTIONS (6)
  - Hip arthroplasty [Recovering/Resolving]
  - Hallucination [Unknown]
  - Mobility decreased [Unknown]
  - Dyskinesia [Unknown]
  - Incorrect route of drug administration [Unknown]
  - Confusional state [Unknown]
